FAERS Safety Report 14321920 (Version 5)
Quarter: 2018Q2

REPORT INFORMATION
  Report Type: Report from Study
  Country: US (occurrence: US)
  Receive Date: 20171225
  Receipt Date: 20180605
  Transmission Date: 20180711
  Serious: No
  Sender: FDA-Public Use
  Company Number: PHEH2017US040904

PATIENT
  Sex: Male

DRUGS (1)
  1. ENTRESTO [Suspect]
     Active Substance: SACUBITRIL\VALSARTAN
     Indication: PRODUCT USED FOR UNKNOWN INDICATION
     Dosage: 1 DF (SACUBITRIL 97MG AND VALSARTAN 103 MG), BID
     Route: 048

REACTIONS (11)
  - Dyspnoea [Recovering/Resolving]
  - Impaired healing [Unknown]
  - Hypertension [Recovering/Resolving]
  - Fall [Unknown]
  - Cough [Unknown]
  - Panic attack [Not Recovered/Not Resolved]
  - Balance disorder [Unknown]
  - Fluid retention [Unknown]
  - Mobility decreased [Unknown]
  - Aneurysm [Recovered/Resolved]
  - Abdominal discomfort [Unknown]
